FAERS Safety Report 5737240-5 (Version None)
Quarter: 2008Q2

REPORT INFORMATION
  Report Type: 
  Country: None (occurrence: None)
  Receive Date: 20080514
  Receipt Date: 20080507
  Transmission Date: 20081010
  Serious: Yes (Hospitalization, Other)
  Sender: FDA-Public Use
  Company Number: PHBS2008FR04196

PATIENT
  Age: 69 Year
  Sex: Female
  Weight: 54 kg

DRUGS (1)
  1. HYDROCHLOROTHIAZIDE [Suspect]
     Dosage: 75 MG/DAY

REACTIONS (4)
  - BLOOD PARATHYROID HORMONE INCREASED [None]
  - CREATININE URINE DECREASED [None]
  - HYPERCALCAEMIA [None]
  - URINE OSMOLARITY DECREASED [None]
